FAERS Safety Report 7218739-1 (Version None)
Quarter: 2011Q1

REPORT INFORMATION
  Report Type: 
  Country: None (occurrence: None)
  Receive Date: 20110110
  Receipt Date: 20101116
  Transmission Date: 20110831
  Serious: No
  Sender: FDA-Public Use
  Company Number: US-ABBOTT-10P-163-0686036-00

PATIENT
  Age: 55 Year
  Sex: Female
  Weight: 122.58 kg

DRUGS (5)
  1. LYRICA [Suspect]
     Indication: RHEUMATOID ARTHRITIS
     Route: 048
     Dates: start: 20080101
  2. LYRICA [Suspect]
     Route: 048
  3. LYRICA [Suspect]
     Route: 048
  4. LYRICA [Suspect]
     Route: 048
  5. VICODIN [Suspect]
     Indication: RHEUMATOID ARTHRITIS
     Route: 048

REACTIONS (2)
  - PRURITUS [None]
  - DRUG INEFFECTIVE [None]
